FAERS Safety Report 5864563-1 (Version None)
Quarter: 2008Q3

REPORT INFORMATION
  Report Type: 
  Country: None (occurrence: None)
  Receive Date: 20080829
  Receipt Date: 20080818
  Transmission Date: 20090109
  Serious: Yes (Hospitalization)
  Sender: FDA-Public Use
  Company Number: GB-JNJFOC-20080804442

PATIENT
  Age: 23 Year
  Sex: Female

DRUGS (7)
  1. FENTANYL-25 [Suspect]
     Indication: BACK PAIN
     Route: 042
  2. ANALGESICS [Suspect]
     Indication: DRUG USE FOR UNKNOWN INDICATION
     Route: 008
  3. BUPIVACAINE [Suspect]
     Indication: BACK PAIN
     Route: 065
  4. DICLOFENAC SODIUM [Suspect]
     Indication: BACK PAIN
     Route: 048
  5. ACETAMINOPHEN AND CODEINE PHOSPHATE [Suspect]
     Indication: BACK PAIN
     Route: 048
  6. MEPERIDINE HCL [Suspect]
     Indication: BACK PAIN
     Route: 030
  7. TRAMADOL HCL [Suspect]
     Indication: BACK PAIN
     Route: 048

REACTIONS (8)
  - BACK PAIN [None]
  - DRUG EXPOSURE DURING PREGNANCY [None]
  - DRUG INTERACTION [None]
  - FALL [None]
  - PREMATURE BABY [None]
  - PREMATURE RUPTURE OF MEMBRANES [None]
  - SACROILIITIS [None]
  - UTERINE CONTRACTIONS DURING PREGNANCY [None]
